FAERS Safety Report 9801649 (Version 1)
Quarter: 2014Q1

REPORT INFORMATION
  Report Type: Spontaneous
  Country: US (occurrence: US)
  Receive Date: 20140107
  Receipt Date: 20140107
  Transmission Date: 20141002
  Serious: Yes (Other)
  Sender: FDA-Public Use
  Company Number: US-PFIZER INC-2014001773

PATIENT
  Age: 25 Year
  Sex: Female
  Weight: 58.05 kg

DRUGS (1)
  1. VISTARIL [Suspect]
     Dosage: 25 ML, SINGLE
     Dates: start: 20100615, end: 20100615

REACTIONS (6)
  - Drug administered at inappropriate site [Unknown]
  - Nerve injury [Unknown]
  - Pain [Unknown]
  - Inflammation [Unknown]
  - Complex regional pain syndrome [Not Recovered/Not Resolved]
  - Off label use [Unknown]
